FAERS Safety Report 9123279 (Version 1)
Quarter: 2013Q1

REPORT INFORMATION
  Report Type: Spontaneous
  Country: US (occurrence: US)
  Receive Date: 20130115
  Receipt Date: 20130115
  Transmission Date: 20140127
  Serious: Yes (Other)
  Sender: FDA-Public Use
  Company Number: US-PFIZER INC-2013016833

PATIENT
  Age: 50 Year
  Sex: Male
  Weight: 128.8 kg

DRUGS (2)
  1. GABAPENTIN [Suspect]
     Indication: NEUROPATHY PERIPHERAL
     Dosage: 100 MG, 2X/DAY
     Route: 048
     Dates: start: 200801, end: 200912
  2. NORCO [Concomitant]
     Dosage: UNK

REACTIONS (2)
  - Sciatica [Unknown]
  - Drug ineffective [Unknown]
